FAERS Safety Report 25383003 (Version 1)
Quarter: 2025Q2

REPORT INFORMATION
  Report Type: Spontaneous
  Country: US (occurrence: US)
  Receive Date: 20250602
  Receipt Date: 20250602
  Transmission Date: 20250717
  Serious: Yes (Hospitalization)
  Sender: AUROBINDO
  Company Number: US-AUROBINDO-AUR-APL-2022-009000

PATIENT
  Age: 1 Year
  Sex: Female

DRUGS (3)
  1. POLYETHYLENE GLYCOL [Suspect]
     Active Substance: POLYETHYLENE GLYCOL
     Indication: Constipation
     Route: 065
  2. LACTULOSE [Suspect]
     Active Substance: LACTULOSE
     Indication: Constipation
     Route: 065
  3. GLYCERYL LAURATE [Suspect]
     Active Substance: GLYCERYL LAURATE
     Indication: Constipation
     Route: 065

REACTIONS (1)
  - Drug ineffective [Unknown]
